FAERS Safety Report 5624908-4 (Version None)
Quarter: 2008Q1

REPORT INFORMATION
  Report Type: 
  Country: None (occurrence: None)
  Receive Date: 20080208
  Receipt Date: 20080130
  Transmission Date: 20080703
  Serious: Yes (Hospitalization)
  Sender: FDA-Public Use
  Company Number: 2007BI020304

PATIENT
  Age: 51 Year
  Sex: Female
  Weight: 75 kg

DRUGS (1)
  1. AVONEX [Suspect]
     Indication: MULTIPLE SCLEROSIS
     Dosage: 30 UG;QW; IM
     Route: 030
     Dates: start: 20030401

REACTIONS (6)
  - GASTRIC ULCER HELICOBACTER [None]
  - HAEMORRHAGIC OVARIAN CYST [None]
  - INFLUENZA LIKE ILLNESS [None]
  - OVARIAN ADHESION [None]
  - UTERINE LEIOMYOMA [None]
  - UTERINE POLYP [None]
